FAERS Safety Report 7202711-1 (Version None)
Quarter: 2010Q4

REPORT INFORMATION
  Report Type: 
  Country: None (occurrence: None)
  Receive Date: 20101220
  Receipt Date: 20101203
  Transmission Date: 20110411
  Serious: Yes (Hospitalization, Other)
  Sender: FDA-Public Use
  Company Number: 008307

PATIENT
  Sex: Female

DRUGS (5)
  1. CERTOLIZUMAB PEGOL (CERTOLIZUMAB PEGOL) [Suspect]
     Indication: RHEUMATOID ARTHRITIS
     Dosage: 200 MG 1X/2 WEEKS SUBCUTANEOUS
     Route: 058
     Dates: start: 20091116, end: 20100208
  2. PREDNISOLONE [Suspect]
     Indication: RHEUMATOID ARTHRITIS
     Dosage: 2.5 MG QD
     Dates: start: 20081211
  3. KETOPROFEN [Concomitant]
  4. AMLODIPINE BESYLATE [Concomitant]
  5. ECABET MONOSODIUM [Concomitant]

REACTIONS (5)
  - ARTHRITIS BACTERIAL [None]
  - BONE CYST [None]
  - DISLOCATION OF VERTEBRA [None]
  - IMMUNOSUPPRESSION [None]
  - STAPHYLOCOCCUS TEST POSITIVE [None]
